FAERS Safety Report 8993200 (Version 1)
Quarter: 2013Q1

REPORT INFORMATION
  Report Type: Spontaneous
  Country: ES (occurrence: ES)
  Receive Date: 20130102
  Receipt Date: 20130102
  Transmission Date: 20140127
  Serious: Yes (Other)
  Sender: FDA-Public Use
  Company Number: ES-ROCHE-1175093

PATIENT
  Age: 40 Year
  Sex: Female

DRUGS (4)
  1. AVASTIN [Suspect]
     Indication: COLON CANCER
     Route: 042
     Dates: start: 20120322
  2. XELODA [Suspect]
     Indication: COLON CANCER
     Route: 065
     Dates: start: 20120301
  3. OXALIPLATIN [Suspect]
     Indication: COLON CANCER
     Route: 065
     Dates: start: 20120301
  4. CETUXIMAB [Concomitant]
     Route: 065

REACTIONS (1)
  - Colonic fistula [Unknown]
